FAERS Safety Report 8580071-1 (Version None)
Quarter: 2012Q3

REPORT INFORMATION
  Report Type: 
  Country: None (occurrence: None)
  Receive Date: 20120808
  Receipt Date: 20120726
  Transmission Date: 20120928
  Serious: No
  Sender: FDA-Public Use
  Company Number: US-ASTRAZENECA-2010SE52899

PATIENT
  Age: 69 Year
  Sex: Female
  Weight: 65.8 kg

DRUGS (6)
  1. KLONOPIN [Interacting]
     Route: 065
  2. SEROQUEL [Interacting]
     Route: 048
  3. SEROQUEL [Suspect]
     Indication: BIPOLAR DISORDER
     Dosage: 50 MG IN THE MORNING AND 50 MG AT BEDTIME
     Route: 048
     Dates: start: 20101103, end: 20101107
  4. SEROQUEL [Interacting]
     Indication: BIPOLAR I DISORDER
     Dosage: 50 MG IN THE MORNING AND 50 MG AT BEDTIME
     Route: 048
     Dates: start: 20101103, end: 20101107
  5. SEROQUEL [Interacting]
     Route: 048
  6. AMOXICILLIN [Concomitant]
     Indication: DIVERTICULITIS

REACTIONS (23)
  - DRUG INTERACTION [None]
  - FEELING JITTERY [None]
  - UPPER-AIRWAY COUGH SYNDROME [None]
  - HOT FLUSH [None]
  - HYPERHIDROSIS [None]
  - CONFUSIONAL STATE [None]
  - POOR QUALITY SLEEP [None]
  - ABDOMINAL PAIN UPPER [None]
  - SOMNOLENCE [None]
  - DYSARTHRIA [None]
  - NAUSEA [None]
  - DIZZINESS [None]
  - FEELING DRUNK [None]
  - CHILLS [None]
  - FEELING ABNORMAL [None]
  - SPEECH DISORDER [None]
  - IMPAIRED DRIVING ABILITY [None]
  - BALANCE DISORDER [None]
  - INITIAL INSOMNIA [None]
  - APHASIA [None]
  - DISSOCIATION [None]
  - STOMATITIS [None]
  - DRY MOUTH [None]
